FAERS Safety Report 4612246-8 (Version None)
Quarter: 2005Q2

REPORT INFORMATION
  Report Type: 
  Country: None (occurrence: None)
  Receive Date: 20050308
  Receipt Date: 20041119
  Transmission Date: 20051028
  Serious: Yes (Other)
  Sender: FDA-Public Use
  Company Number: 2004UW23906

PATIENT
  Age: 59 Year
  Sex: Female

DRUGS (5)
  1. CRESTOR [Suspect]
     Dosage: 40 MG PO
     Route: 048
     Dates: start: 20020702
  2. CRESTOR [Suspect]
     Dosage: 40 MG PO
     Route: 048
  3. RELAFEN [Concomitant]
  4. BENBUTAL [Concomitant]
  5. ASPIRIN [Concomitant]

REACTIONS (1)
  - HYPOAESTHESIA [None]
